FAERS Safety Report 4992718-7 (Version None)
Quarter: 2006Q1

REPORT INFORMATION
  Report Type: 
  Country: None (occurrence: None)
  Receive Date: 20060315
  Receipt Date: 20050607
  Transmission Date: 20060701
  Serious: Yes (Other)
  Sender: FDA-Public Use
  Company Number: USA050699932

PATIENT
  Sex: Male

DRUGS (1)
  1. GEMZAR [Suspect]
     Indication: PANCREATIC CARCINOMA

REACTIONS (2)
  - BLOOD BILIRUBIN INCREASED [None]
  - MALIGNANT NEOPLASM PROGRESSION [None]
